FAERS Safety Report 14127444 (Version 2)
Quarter: 2017Q4

REPORT INFORMATION
  Report Type: Report from Study
  Country: MX (occurrence: MX)
  Receive Date: 20171026
  Receipt Date: 20171105
  Transmission Date: 20180321
  Serious: No
  Sender: FDA-Public Use
  Company Number: MX-AMGEN-MEXCT2017020469

PATIENT
  Age: 18 Year
  Sex: Female

DRUGS (6)
  1. INDOMETHACIN. [Concomitant]
     Active Substance: INDOMETHACIN
     Dosage: 50 MG, QD
     Route: 050
     Dates: start: 20161026
  2. PREDNISONE. [Concomitant]
     Active Substance: PREDNISONE
     Indication: EXPOSURE DURING PREGNANCY
     Dosage: 7.5 MG, QD
     Route: 050
     Dates: start: 20170306
  3. NAPROXEN. [Concomitant]
     Active Substance: NAPROXEN
     Indication: EXPOSURE DURING PREGNANCY
     Dosage: 1000 MG, QD
     Route: 050
     Dates: start: 20170306
  4. INDOMETHACIN. [Concomitant]
     Active Substance: INDOMETHACIN
     Indication: EXPOSURE DURING PREGNANCY
     Dosage: 100 MG, BID
     Route: 050
     Dates: start: 20120625, end: 20150812
  5. ETANERCEPT [Suspect]
     Active Substance: ETANERCEPT
     Indication: EXPOSURE DURING PREGNANCY
     Dosage: UNK UNK, QWK
     Route: 050
     Dates: start: 20130206, end: 20170125
  6. AZULFIDINE [Concomitant]
     Active Substance: SULFASALAZINE
     Indication: EXPOSURE DURING PREGNANCY
     Dosage: 2000 MG, QD
     Route: 050
     Dates: start: 20101101

REACTIONS (1)
  - Paternal exposure timing unspecified [Unknown]

NARRATIVE: CASE EVENT DATE: 20161113
